FAERS Safety Report 7539676-9 (Version None)
Quarter: 2011Q2

REPORT INFORMATION
  Report Type: 
  Country: None (occurrence: None)
  Receive Date: 20110610
  Receipt Date: 20110526
  Transmission Date: 20111010
  Serious: Yes (Hospitalization)
  Sender: FDA-Public Use
  Company Number: CA-JNJFOC-20110600432

PATIENT
  Sex: Male
  Weight: 104 kg

DRUGS (4)
  1. GABAPENTIN [Concomitant]
     Route: 065
  2. REMICADE [Suspect]
     Indication: ANKYLOSING SPONDYLITIS
     Dosage: TOTAL OF 42 INFUSIONS
     Route: 042
     Dates: start: 20051101
  3. CELEBREX [Concomitant]
     Route: 065
  4. TEGRETOL [Concomitant]
     Route: 065

REACTIONS (1)
  - TRIGEMINAL NEURALGIA [None]
